FAERS Safety Report 24566364 (Version 3)
Quarter: 2025Q3

REPORT INFORMATION
  Report Type: Spontaneous
  Country: EU (occurrence: EU)
  Receive Date: 20241030
  Receipt Date: 20250810
  Transmission Date: 20251021
  Serious: Yes (Other)
  Sender: ALEXION PHARMACEUTICALS
  Company Number: EU-AstraZeneca-CH-00734567A

PATIENT
  Age: 8 Year
  Sex: Female
  Weight: 40 kg

DRUGS (1)
  1. KOSELUGO [Suspect]
     Active Substance: SELUMETINIB
     Indication: Neurofibromatosis
     Dosage: 25 MILLIGRAM, BID
     Dates: start: 202208

REACTIONS (9)
  - Multiple fractures [Recovered/Resolved]
  - Fall [Recovered/Resolved]
  - Clumsiness [Recovered/Resolved]
  - Torus fracture [Unknown]
  - Accident [Unknown]
  - C-reactive protein increased [Unknown]
  - Red blood cell count decreased [Unknown]
  - Neurone-specific enolase increased [Unknown]
  - Lymphocyte count decreased [Unknown]

NARRATIVE: CASE EVENT DATE: 20240406
